FAERS Safety Report 23812296 (Version 1)
Quarter: 2024Q2

REPORT INFORMATION
  Report Type: Spontaneous
  Country: US (occurrence: US)
  Receive Date: 20240503
  Receipt Date: 20240503
  Transmission Date: 20240717
  Serious: No
  Sender: FDA-Public Use
  Company Number: US-UCBSA-2023035863

PATIENT
  Age: 47 Year
  Sex: Male

DRUGS (1)
  1. CIMZIA [Suspect]
     Active Substance: CERTOLIZUMAB PEGOL
     Indication: Product used for unknown indication
     Dosage: 200 MILLIGRAM, OTHER
     Route: 058

REACTIONS (5)
  - Skin irritation [Unknown]
  - Piloerection [Unknown]
  - Pruritus [Unknown]
  - Dry skin [Unknown]
  - Inappropriate schedule of product administration [Unknown]

NARRATIVE: CASE EVENT DATE: 20230608
